FAERS Safety Report 8182188-2 (Version None)
Quarter: 2012Q1

REPORT INFORMATION
  Report Type: 
  Country: None (occurrence: None)
  Receive Date: 20120302
  Receipt Date: 20120227
  Transmission Date: 20120608
  Serious: Yes (Other)
  Sender: FDA-Public Use
  Company Number: US-ASTRAZENECA-2011SE00156

PATIENT
  Age: 64 Year
  Sex: Female

DRUGS (3)
  1. NEXIUM [Suspect]
     Route: 048
  2. NEXIUM [Suspect]
     Route: 048
  3. CHEMOTHERAPY [Suspect]
     Route: 065

REACTIONS (5)
  - NEOPLASM MALIGNANT [None]
  - VISUAL IMPAIRMENT [None]
  - DRUG DOSE OMISSION [None]
  - THROAT IRRITATION [None]
  - GASTRIC DISORDER [None]
